FAERS Safety Report 23251634 (Version 3)
Quarter: 2024Q1

REPORT INFORMATION
  Report Type: Spontaneous
  Country: DE (occurrence: DE)
  Receive Date: 20231201
  Receipt Date: 20240104
  Transmission Date: 20240410
  Serious: Yes (Other)
  Sender: FDA-Public Use
  Company Number: DE-CIPLA (EU) LIMITED-2023DE01411

PATIENT
  Age: 65 Year
  Sex: Male

DRUGS (1)
  1. BORTEZOMIB [Suspect]
     Active Substance: BORTEZOMIB
     Indication: Plasma cell myeloma
     Dosage: 23.4 MG/M2 (4 CYCLES APPROXIMATE CUMULATIVE DOSE)
     Route: 065
     Dates: start: 202111

REACTIONS (7)
  - Diffuse axonal injury [Unknown]
  - Sensory loss [Unknown]
  - Pain [Unknown]
  - Neuropathy peripheral [Unknown]
  - Neuralgia [Unknown]
  - Paraesthesia [Unknown]
  - Hypoaesthesia [Unknown]
